FAERS Safety Report 5019268-6 (Version None)
Quarter: 2006Q2

REPORT INFORMATION
  Report Type: 
  Country: None (occurrence: None)
  Receive Date: 20060530
  Receipt Date: 20050628
  Transmission Date: 20061013
  Serious: Yes (Hospitalization, Other)
  Sender: FDA-Public Use
  Company Number: 2005093169

PATIENT
  Sex: Male
  Weight: 92 kg

DRUGS (3)
  1. LYRICA [Suspect]
     Indication: POLYNEUROPATHY
     Dosage: 75 MG DAILY, ORAL
     Route: 048
     Dates: start: 20050101, end: 20050608
  2. MARCUMAR [Suspect]
     Indication: ARTERIAL OCCLUSIVE DISEASE
     Dosage: ORAL
     Route: 048
     Dates: start: 20050101
  3. DURAGESIC-100 [Suspect]
     Indication: PAIN
     Dosage: TRANSDERMAL
     Route: 062

REACTIONS (4)
  - ACUTE MYELOID LEUKAEMIA [None]
  - LEUKOPENIA [None]
  - MYELODYSPLASTIC SYNDROME [None]
  - THROMBOCYTOPENIA [None]
